FAERS Safety Report 8876034 (Version 1)
Quarter: 2012Q4

REPORT INFORMATION
  Report Type: 
  Country: ES (occurrence: ES)
  Receive Date: 20121030
  Receipt Date: 20121030
  Transmission Date: 20130627
  Serious: Yes (Hospitalization, Other)
  Sender: FDA-Public Use
  Company Number: ES-ELI_LILLY_AND_COMPANY-ES201210006239

PATIENT
  Age: 56 Year
  Sex: Male
  Weight: 43 kg

DRUGS (8)
  1. FORSTEO [Suspect]
     Indication: OSTEOPOROSIS
     Dosage: 20 ug, qd
     Route: 058
     Dates: start: 20110608
  2. IMMUNOSUPPRESSANTS [Concomitant]
     Indication: LUNG TRANSPLANT
     Dosage: 6 mg, each morning
  3. IMMUNOSUPPRESSANTS [Concomitant]
     Dosage: 8 mg, each evening
  4. DINISOR [Concomitant]
     Indication: HYPERTENSION
     Dosage: 2 DF, qd
  5. CELLCEPT [Concomitant]
     Dosage: 500 mg, qd
  6. PHOSPHORE [Concomitant]
  7. LORAZEPAM [Concomitant]
  8. DACORTIN [Concomitant]

REACTIONS (1)
  - Lung transplant [Recovering/Resolving]
